FAERS Safety Report 10796281 (Version 1)
Quarter: 2015Q1

REPORT INFORMATION
  Report Type: Spontaneous
  Country: GB (occurrence: GB)
  Receive Date: 20150216
  Receipt Date: 20150216
  Transmission Date: 20150721
  Serious: Yes (Other)
  Sender: FDA-Public Use
  Company Number: GB-UCBSA-2014017235

PATIENT
  Sex: Male
  Weight: 79 kg

DRUGS (9)
  1. APOMORPHINE [Concomitant]
     Active Substance: APOMORPHINE
     Indication: PARKINSON^S DISEASE
     Dosage: STRENGTH: 30MG/3 ML INJECTIONS, FREQUENCY: VARIES; PRE-FILLED DISPOSIBLE INJ
     Route: 058
     Dates: start: 201406
  2. SINEMET [Concomitant]
     Active Substance: CARBIDOPA\LEVODOPA
     Indication: PARKINSON^S DISEASE
     Dosage: STRENGTH: 25 MG/100 MG 7/DAY;
     Route: 048
     Dates: start: 201006
  3. MADOPAR [Concomitant]
     Active Substance: BENSERAZIDE HYDROCHLORIDE\LEVODOPA
     Dosage: 50 MG, 5X/DAY; STRENGTH: 50 MG/12.5 MG DISPERSIBLE TABLET
  4. DOMPERIDONE [Concomitant]
     Active Substance: DOMPERIDONE
     Indication: PARKINSON^S DISEASE
     Dosage: 10 MG, 3X/DAY (TID)
     Route: 048
     Dates: start: 201408
  5. NEUPRO [Suspect]
     Active Substance: ROTIGOTINE
     Indication: PARKINSON^S DISEASE
     Dosage: 6 MG, ONCE DAILY (QD)
     Route: 062
     Dates: start: 20080615
  6. DOMPERIDONE [Concomitant]
     Active Substance: DOMPERIDONE
     Indication: NAUSEA
  7. RISEDRONATE [Concomitant]
     Active Substance: RISEDRONATE SODIUM
     Indication: PRODUCT USED FOR UNKNOWN INDICATION
     Dosage: 35 MG, WEEKLY (QW); STRENGTH: 35 MG
  8. MADOPAR [Concomitant]
     Active Substance: BENSERAZIDE HYDROCHLORIDE\LEVODOPA
     Indication: PARKINSON^S DISEASE
     Dosage: STRENGTH: 50 MG/12.5  MG CAPSULE, 4-5/DAY;
     Route: 048
     Dates: start: 201401
  9. STALEVO [Concomitant]
     Active Substance: CARBIDOPA\ENTACAPONE\LEVODOPA
     Indication: PARKINSON^S DISEASE
     Dosage: UNK, 3X/DAY (TID), 200MG/50MG/200MG
     Route: 048
     Dates: start: 201004

REACTIONS (4)
  - Wrong technique in drug usage process [Unknown]
  - Hyperhidrosis [Unknown]
  - Product adhesion issue [Unknown]
  - Malaise [Unknown]

NARRATIVE: CASE EVENT DATE: 2014
